FAERS Safety Report 21904117 (Version 1)
Quarter: 2023Q1

REPORT INFORMATION
  Report Type: Spontaneous
  Country: US (occurrence: None)
  Receive Date: 20230123
  Receipt Date: 20230123
  Transmission Date: 20230417
  Serious: Yes (Hospitalization)
  Sender: FDA-Public Use
  Company Number: None

PATIENT
  Age: 71 Year
  Sex: Male
  Weight: 102.19 kg

DRUGS (24)
  1. LENALIDOMIDE [Suspect]
     Active Substance: LENALIDOMIDE
     Indication: Myelodysplastic syndrome
     Dosage: OTHER FREQUENCY : 2W, 1W OFF;?
     Route: 048
  2. AMLODIPINE [Concomitant]
     Active Substance: AMLODIPINE BESYLATE
  3. ASMANEX [Concomitant]
     Active Substance: MOMETASONE FUROATE
  4. Aspercreme/Aloe External Cream [Concomitant]
  5. ATORVASTATIN [Concomitant]
  6. CARAFATE [Concomitant]
     Active Substance: SUCRALFATE
  7. CARVEDILOL [Concomitant]
     Active Substance: CARVEDILOL
  8. DARBEPOETIN ALFA [Concomitant]
     Active Substance: DARBEPOETIN ALFA
  9. DEXILANT [Concomitant]
     Active Substance: DEXLANSOPRAZOLE
  10. EPOETIN ALFA [Concomitant]
     Active Substance: ERYTHROPOIETIN
  11. FLUOXETINE [Concomitant]
  12. HYDROXYZINE [Concomitant]
     Active Substance: HYDROXYZINE HYDROCHLORIDE
  13. ALBUTEROL\IPRATROPIUM [Concomitant]
     Active Substance: ALBUTEROL\IPRATROPIUM
  14. LISINOPRIL [Concomitant]
  15. MAGNESIUM OXIDE [Concomitant]
     Active Substance: MAGNESIUM OXIDE
  16. MIRALAX [Concomitant]
     Active Substance: POLYETHYLENE GLYCOL 3350
  17. MIRTAZAPINE [Concomitant]
     Active Substance: MIRTAZAPINE
  18. NEBULIZER WITH MASK [Concomitant]
  19. RETACRIT [Concomitant]
     Active Substance: EPOETIN ALFA-EPBX
  20. TRELEGY ELLIPTA [Concomitant]
     Active Substance: FLUTICASONE FUROATE\UMECLIDINIUM BROMIDE\VILANTEROL TRIFENATATE
  21. TYLENOL [Concomitant]
     Active Substance: ACETAMINOPHEN
  22. WARFARIN SODIUM [Concomitant]
     Active Substance: WARFARIN SODIUM
  23. XYZAL [Concomitant]
     Active Substance: LEVOCETIRIZINE DIHYDROCHLORIDE
  24. ZOLPIDEM TARTRATE [Concomitant]
     Active Substance: ZOLPIDEM TARTRATE

REACTIONS (1)
  - Hospitalisation [None]
